FAERS Safety Report 23543636 (Version 18)
Quarter: 2025Q2

REPORT INFORMATION
  Report Type: Spontaneous
  Country: CA (occurrence: CA)
  Receive Date: 20240220
  Receipt Date: 20250610
  Transmission Date: 20250717
  Serious: Yes (Hospitalization, Other)
  Sender: CELLTRION
  Company Number: CA-CELLTRION INC.-2024CA004225

PATIENT

DRUGS (17)
  1. INFLECTRA [Suspect]
     Active Substance: INFLIXIMAB-DYYB
     Indication: Crohn^s disease
     Route: 042
     Dates: start: 20240131
  2. INFLECTRA [Suspect]
     Active Substance: INFLIXIMAB-DYYB
     Route: 042
     Dates: start: 20240212
  3. INFLECTRA [Suspect]
     Active Substance: INFLIXIMAB-DYYB
     Route: 042
     Dates: start: 20240617
  4. INFLECTRA [Suspect]
     Active Substance: INFLIXIMAB-DYYB
     Route: 042
     Dates: start: 20240812
  5. INFLECTRA [Suspect]
     Active Substance: INFLIXIMAB-DYYB
     Route: 042
     Dates: start: 20241008
  6. INFLECTRA [Suspect]
     Active Substance: INFLIXIMAB-DYYB
     Route: 042
     Dates: start: 20250326
  7. AMLODIPINE [Concomitant]
     Active Substance: AMLODIPINE BESYLATE
  8. AMITRIPTYLINE [Concomitant]
     Active Substance: AMITRIPTYLINE
  9. CANNABIDIOL [Concomitant]
     Active Substance: CANNABIDIOL
  10. DULOXETINE [Concomitant]
     Active Substance: DULOXETINE
  11. MIRTAZAPINE [Concomitant]
     Active Substance: MIRTAZAPINE
  12. PREDNISONE [Concomitant]
     Active Substance: PREDNISONE
  13. PANTOPRAZOLE [Concomitant]
     Active Substance: PANTOPRAZOLE
  14. SYNTHROID [Concomitant]
     Active Substance: LEVOTHYROXINE SODIUM
  15. SILDENAFIL [Concomitant]
     Active Substance: SILDENAFIL
  16. CHOLECALCIFEROL [Concomitant]
     Active Substance: CHOLECALCIFEROL
  17. VITAMIN B12 [Concomitant]
     Active Substance: CYANOCOBALAMIN

REACTIONS (22)
  - Acute myocardial infarction [Unknown]
  - Arterial occlusive disease [Unknown]
  - Large intestinal stenosis [Unknown]
  - Intestinal anastomosis [Unknown]
  - Anxiety [Not Recovered/Not Resolved]
  - Mental disorder [Not Recovered/Not Resolved]
  - Aggression [Not Recovered/Not Resolved]
  - Procedural pain [Not Recovered/Not Resolved]
  - Cough [Unknown]
  - Nasal congestion [Unknown]
  - Infusion site pain [Recovering/Resolving]
  - Drug level below therapeutic [Unknown]
  - Panic reaction [Unknown]
  - Fatigue [Not Recovered/Not Resolved]
  - Pain [Not Recovered/Not Resolved]
  - Headache [Recovering/Resolving]
  - Agitation [Unknown]
  - Infusion site extravasation [Unknown]
  - Peripheral swelling [Unknown]
  - Diverticulum intestinal [Unknown]
  - Haemorrhoids [Unknown]
  - Condition aggravated [Unknown]

NARRATIVE: CASE EVENT DATE: 20240101
